FAERS Safety Report 5813506-5 (Version None)
Quarter: 2008Q3

REPORT INFORMATION
  Report Type: 
  Country: None (occurrence: None)
  Receive Date: 20080717
  Receipt Date: 20080708
  Transmission Date: 20090109
  Serious: Yes (Hospitalization, Other)
  Sender: FDA-Public Use
  Company Number: US-ELI_LILLY_AND_COMPANY-US200805004841

PATIENT
  Sex: Female

DRUGS (39)
  1. ALIMTA [Suspect]
     Indication: NON-SMALL CELL LUNG CANCER STAGE IIIB
  2. GEMZAR [Suspect]
     Indication: NON-SMALL CELL LUNG CANCER STAGE IIIB
     Dosage: UNK, OTHER
     Dates: start: 20080101, end: 20080512
  3. INSULIN INSULATARD NPH NORDISK [Concomitant]
     Dosage: 26 U, EACH MORNING
     Route: 058
  4. INSULIN INSULATARD NPH NORDISK [Concomitant]
     Dosage: 6 U, EACH EVENING
     Route: 058
  5. INSULIN INSULATARD NPH NORDISK [Concomitant]
     Dosage: 36 U, EACH MORNING
  6. INSULIN INSULATARD NPH NORDISK [Concomitant]
     Dosage: 12 U, EACH EVENING
  7. NOVOLOG [Concomitant]
     Indication: DIABETES MELLITUS
     Dosage: 7 U, EACH MORNING
  8. NOVOLOG [Concomitant]
     Dosage: 13 U, OTHER
  9. NOVOLOG [Concomitant]
     Dosage: 20 U, EACH EVENING
  10. HUMALOG [Concomitant]
     Dosage: 6 U, OTHER
     Route: 058
  11. HUMALOG [Concomitant]
     Dosage: 10 U, OTHER
     Route: 058
  12. HUMALOG [Concomitant]
     Dosage: 15 U, OTHER
     Route: 058
  13. SYNTHROID [Concomitant]
     Dosage: 125 UG, 2/D
     Route: 048
  14. PAXIL [Concomitant]
     Dosage: 40 MG, DAILY (1/D)
     Route: 048
  15. DILAUDID [Concomitant]
  16. NEURONTIN [Concomitant]
     Dosage: 300 MG, 3/D
  17. NEURONTIN [Concomitant]
     Dosage: 300 MG, 2/D
     Route: 048
  18. LYRICA [Concomitant]
     Dosage: 75 MG, 2/D
     Route: 048
  19. LYRICA [Concomitant]
     Dosage: 50 MG, 2/D
     Route: 048
  20. AVAPRO [Concomitant]
     Dosage: 300 MG, DAILY (1/D)
     Route: 048
  21. ACIPHEX [Concomitant]
     Dosage: 20 MG, 2/D
     Route: 048
  22. ZOFRAN [Concomitant]
  23. LASIX [Concomitant]
     Dosage: 20 MG, DAILY (1/D)
     Route: 048
  24. DOCUSATE SODIUM [Concomitant]
     Dosage: 100 MG, DAILY (1/D)
     Route: 048
  25. TUSSIONEX [Concomitant]
     Dosage: 5 ML, AS NEEDED
  26. MUCINEX [Concomitant]
     Dosage: 600 MG, 2/D
  27. DICLOXACILLIN [Concomitant]
     Dosage: 500 MG, EVERY 6 HRS
     Route: 048
  28. CRESTOR [Concomitant]
  29. ZINC [Concomitant]
     Dosage: 220 UG, DAILY (1/D)
     Route: 048
  30. ASCORBIC ACID [Concomitant]
     Dosage: 500 MG, DAILY (1/D)
     Route: 048
  31. CALCIUM WITH VITAMIN D [Concomitant]
     Dosage: 1 D/F, 2/D
  32. LOVAZA [Concomitant]
  33. LYSINE [Concomitant]
  34. PREDNISONE TAB [Concomitant]
  35. LIDEX [Concomitant]
     Route: 050
  36. MULTI-VITAMIN [Concomitant]
     Dosage: UNK, DAILY (1/D)
  37. BIAFINE [Concomitant]
     Dosage: UNK, QOD
     Route: 050
  38. DUODERM [Concomitant]
     Dosage: UNK, QOD
     Route: 050
  39. TARCEVA [Concomitant]
     Indication: NON-SMALL CELL LUNG CANCER STAGE IIIB

REACTIONS (22)
  - ALANINE AMINOTRANSFERASE INCREASED [None]
  - ANAEMIA [None]
  - ARTHROPATHY [None]
  - ASPARTATE AMINOTRANSFERASE INCREASED [None]
  - ASTHENIA [None]
  - BLOOD ALKALINE PHOSPHATASE INCREASED [None]
  - BLOOD GLUCOSE INCREASED [None]
  - BLOOD PRESSURE SYSTOLIC INCREASED [None]
  - BODY TEMPERATURE INCREASED [None]
  - DEPRESSED LEVEL OF CONSCIOUSNESS [None]
  - FALL [None]
  - HEART RATE INCREASED [None]
  - HYPOTENSION [None]
  - MALIGNANT NEOPLASM PROGRESSION [None]
  - MEMORY IMPAIRMENT [None]
  - MENTAL STATUS CHANGES [None]
  - ORTHOSTATIC HYPOTENSION [None]
  - PAIN [None]
  - PRESYNCOPE [None]
  - RASH [None]
  - SOMNOLENCE [None]
  - VASCULITIS [None]
